FAERS Safety Report 21447204 (Version 4)
Quarter: 2022Q4

REPORT INFORMATION
  Report Type: Report from Study
  Country: ES (occurrence: ES)
  Receive Date: 20221012
  Receipt Date: 20221219
  Transmission Date: 20230112
  Serious: Yes (Other)
  Sender: FDA-Public Use
  Company Number: ES-DSJP-DSU-2022-135722

PATIENT
  Age: 56 Year
  Sex: Male
  Weight: 75 kg

DRUGS (15)
  1. ENHERTU [Suspect]
     Active Substance: FAM-TRASTUZUMAB DERUXTECAN-NXKI
     Indication: HER2 positive breast cancer
     Dosage: 5.4 MG/KG, ONCE EVERY 3 WK
     Route: 042
     Dates: start: 20220110
  2. ENHERTU [Suspect]
     Active Substance: FAM-TRASTUZUMAB DERUXTECAN-NXKI
     Dosage: 400 MG, ONCE EVERY 3 WK
     Route: 042
     Dates: start: 20220131
  3. ENHERTU [Suspect]
     Active Substance: FAM-TRASTUZUMAB DERUXTECAN-NXKI
     Dosage: 400 MG, ONCE EVERY 3 WK
     Route: 042
     Dates: start: 20220221
  4. ENHERTU [Suspect]
     Active Substance: FAM-TRASTUZUMAB DERUXTECAN-NXKI
     Dosage: 400 MG, ONCE EVERY 3 WK
     Route: 042
     Dates: start: 20220314
  5. ENHERTU [Suspect]
     Active Substance: FAM-TRASTUZUMAB DERUXTECAN-NXKI
     Dosage: 400 MG, ONCE EVERY 3 WK
     Route: 042
     Dates: start: 20220404
  6. ENHERTU [Suspect]
     Active Substance: FAM-TRASTUZUMAB DERUXTECAN-NXKI
     Dosage: 400 UNK, ONCE EVERY 3 WK
     Route: 042
     Dates: end: 20220425
  7. ENHERTU [Suspect]
     Active Substance: FAM-TRASTUZUMAB DERUXTECAN-NXKI
     Dosage: 400 MG, ONCE EVERY 3 WK
     Route: 042
     Dates: start: 20220513
  8. ENHERTU [Suspect]
     Active Substance: FAM-TRASTUZUMAB DERUXTECAN-NXKI
     Dosage: 400 MG, ONCE EVERY 3 WK
     Route: 042
     Dates: start: 20220606
  9. ENHERTU [Suspect]
     Active Substance: FAM-TRASTUZUMAB DERUXTECAN-NXKI
     Dosage: 320 MG, ONCE EVERY 3 WK
     Route: 042
     Dates: start: 20220718
  10. ENHERTU [Suspect]
     Active Substance: FAM-TRASTUZUMAB DERUXTECAN-NXKI
     Dosage: 320 MG, ONCE EVERY 3 WK
     Route: 042
     Dates: start: 20220919
  11. PRIMPERAN [Concomitant]
     Active Substance: METOCLOPRAMIDE HYDROCHLORIDE
     Indication: Product used for unknown indication
     Dosage: 10 MG, ONCE EVERY 8HR
     Route: 048
     Dates: start: 20200710
  12. FERROUS SULFATE [Concomitant]
     Active Substance: FERROUS SULFATE
     Indication: Product used for unknown indication
     Dosage: 256 MG (FASTING)
     Route: 048
     Dates: start: 20211001
  13. LUMINAL [PHENOBARBITAL] [Concomitant]
     Indication: Product used for unknown indication
     Dosage: 0.1 G (FASTING)
     Route: 048
     Dates: start: 20050208
  14. PERICIAZINE [Concomitant]
     Active Substance: PERICIAZINE
     Indication: Product used for unknown indication
     Dosage: 10 MG (FASTING)
     Route: 048
     Dates: start: 20060927
  15. CETIRIZINE [Concomitant]
     Active Substance: CETIRIZINE HYDROCHLORIDE
     Indication: Product used for unknown indication
     Dosage: 10 MG (FASTING)
     Route: 048
     Dates: start: 20190924

REACTIONS (6)
  - Haematotoxicity [Unknown]
  - Neutropenia [Recovered/Resolved]
  - Thrombocytopenia [Recovered/Resolved]
  - Neutropenia [Recovered/Resolved]
  - Hypertransaminasaemia [Recovered/Resolved]
  - Neutropenia [Recovered/Resolved]

NARRATIVE: CASE EVENT DATE: 20220101
